FAERS Safety Report 9858165 (Version 1)
Quarter: 2014Q1

REPORT INFORMATION
  Report Type: Spontaneous
  Country: US (occurrence: None)
  Receive Date: 20140129
  Receipt Date: 20140129
  Transmission Date: 20141002
  Serious: Yes (Other)
  Sender: FDA-Public Use
  Company Number: None

PATIENT
  Age: 18 Year
  Sex: Female
  Weight: 63.87 kg

DRUGS (1)
  1. CIPRODEX [Suspect]
     Indication: CONJUNCTIVITIS
     Dates: start: 20140116

REACTIONS (2)
  - Eye infection [None]
  - Burning sensation [None]
